FAERS Safety Report 8831824 (Version 1)
Quarter: 2012Q4

REPORT INFORMATION
  Report Type: 
  Country: IN (occurrence: IN)
  Receive Date: 20121008
  Receipt Date: 20121008
  Transmission Date: 20130627
  Serious: Yes (Other)
  Sender: FDA-Public Use
  Company Number: IN-GILEAD-2012-0062394

PATIENT
  Age: 50 Year
  Sex: Male

DRUGS (5)
  1. VIREAD [Suspect]
     Indication: HIV INFECTION
     Dosage: UNK
  2. VIREAD [Suspect]
     Dosage: UNK
     Route: 048
  3. LAMIVUDINE [Concomitant]
     Indication: HIV INFECTION
  4. NEVIRAPINE [Concomitant]
     Indication: HIV INFECTION
  5. STAVUDINE [Concomitant]

REACTIONS (4)
  - Photosensitivity reaction [Recovered/Resolved]
  - Eosinophilia [Recovering/Resolving]
  - Anaemia macrocytic [Unknown]
  - Thrombocytopenia [Unknown]
